FAERS Safety Report 25465494 (Version 1)
Quarter: 2025Q2

REPORT INFORMATION
  Report Type: Spontaneous
  Country: US (occurrence: US)
  Receive Date: 20250623
  Receipt Date: 20250623
  Transmission Date: 20250717
  Serious: No
  Sender: CSL BEHRING
  Company Number: US-BEH-2025209337

PATIENT
  Sex: Female

DRUGS (2)
  1. PRIVIGEN [Suspect]
     Active Substance: HUMAN IMMUNOGLOBULIN G
     Dosage: 10 G, QMT (EVERY 4 WEEKS)
     Route: 042
     Dates: start: 202011
  2. PRIVIGEN [Suspect]
     Active Substance: HUMAN IMMUNOGLOBULIN G
     Dosage: 5 G, QMT (EVERY 4 WEEKS)
     Route: 042
     Dates: start: 202011

REACTIONS (2)
  - Nodule [Unknown]
  - Pain in extremity [Unknown]
